FAERS Safety Report 13812634 (Version 3)
Quarter: 2017Q4

REPORT INFORMATION
  Report Type: Report from Study
  Country: JP (occurrence: JP)
  Receive Date: 20170729
  Receipt Date: 20171019
  Transmission Date: 20180320
  Serious: Yes (Hospitalization)
  Sender: FDA-Public Use
  Company Number: JP-B.I. PHARMACEUTICALS,INC./RIDGEFIELD-2017-NB-004298

PATIENT
  Age: 87 Year
  Sex: Male
  Weight: 43.9 kg

DRUGS (3)
  1. HUSCODE [Concomitant]
     Active Substance: CHLORPHENIRAMINE MALEAT\DIHYDROCODEINE PHOSPHATE\METHYLEPHEDRINE HYDROCHLORIDE, DL-
     Indication: PRODUCT USED FOR UNKNOWN INDICATION
     Route: 065
     Dates: end: 20160229
  2. SPIRIVA [Concomitant]
     Active Substance: TIOTROPIUM BROMIDE MONOHYDRATE
     Indication: PRODUCT USED FOR UNKNOWN INDICATION
     Route: 065
     Dates: end: 20160229
  3. BIBF 1120 [Suspect]
     Active Substance: NINTEDANIB
     Indication: IDIOPATHIC PULMONARY FIBROSIS
     Route: 048
     Dates: start: 20151120, end: 20160102

REACTIONS (3)
  - Liver disorder [Recovered/Resolved]
  - Liver disorder [Recovered/Resolved]
  - Platelet count decreased [Recovered/Resolved]

NARRATIVE: CASE EVENT DATE: 20151124
